FAERS Safety Report 10681850 (Version 1)
Quarter: 2014Q4

REPORT INFORMATION
  Report Type: Spontaneous
  Country: US (occurrence: None)
  Receive Date: 20141229
  Receipt Date: 20141229
  Transmission Date: 20150529
  Serious: Yes (Other)
  Sender: FDA-Public Use
  Company Number: None

PATIENT
  Age: 38 Year
  Sex: Male
  Weight: 88.91 kg

DRUGS (5)
  1. VIMPAT [Concomitant]
     Active Substance: LACOSAMIDE
  2. GLIMEPIRIDE. [Concomitant]
     Active Substance: GLIMEPIRIDE
  3. FISH OIL [Concomitant]
     Active Substance: FISH OIL
  4. LANTUS SOLOSTAR [Suspect]
     Active Substance: INSULIN GLARGINE
     Indication: TYPE 2 DIABETES MELLITUS
     Dosage: 20 UNITS DAILY, ONCE DAILY, INJECT 20 UNITS DAILY
     Dates: start: 20141113, end: 20141224
  5. CARBAMAZEPINE. [Concomitant]
     Active Substance: CARBAMAZEPINE

REACTIONS (3)
  - Anger [None]
  - Speech disorder [None]
  - Weight increased [None]

NARRATIVE: CASE EVENT DATE: 20141225
